FAERS Safety Report 18820597 (Version 1)
Quarter: 2021Q1

REPORT INFORMATION
  Report Type: Spontaneous
  Country: US (occurrence: US)
  Receive Date: 20210202
  Receipt Date: 20210202
  Transmission Date: 20210419
  Serious: No
  Sender: FDA-Public Use
  Company Number: US-009507513-2101USA013616

PATIENT
  Age: 35 Year
  Sex: Female
  Weight: 58.51 kg

DRUGS (1)
  1. NEXPLANON [Suspect]
     Active Substance: ETONOGESTREL
     Indication: CONTRACEPTION
     Dosage: 68 MILLIGRAM, ONCE, LEFT ARM
     Route: 059
     Dates: start: 20201110

REACTIONS (4)
  - Complication associated with device [Unknown]
  - Implant site infection [Recovered/Resolved]
  - Device difficult to use [Unknown]
  - Device expulsion [Unknown]

NARRATIVE: CASE EVENT DATE: 20201110
